FAERS Safety Report 4346513-2 (Version None)
Quarter: 2004Q2

REPORT INFORMATION
  Report Type: 
  Country: None (occurrence: None)
  Receive Date: 20040426
  Receipt Date: 20031103
  Transmission Date: 20050107
  Serious: No
  Sender: FDA-Public Use
  Company Number: US-BRISTOL-MYERS SQUIBB COMPANY-12425724

PATIENT
  Age: 47 Year
  Sex: Female
  Weight: 71 kg

DRUGS (7)
  1. CARBOPLATIN [Suspect]
     Indication: BREAST CANCER
     Route: 042
     Dates: start: 20031030, end: 20031030
  2. TAXOTERE [Concomitant]
     Dates: start: 20031030, end: 20031020
  3. HERCEPTIN [Concomitant]
     Dates: start: 20031030, end: 20031030
  4. DECADRON [Concomitant]
     Indication: PREMEDICATION
     Dates: start: 20031029, end: 20031029
  5. BENADRYL [Concomitant]
     Indication: PREMEDICATION
     Route: 042
     Dates: start: 20031030, end: 20031030
  6. ANZEMET [Concomitant]
     Indication: PREMEDICATION
     Route: 042
     Dates: start: 20031030, end: 20031030
  7. PROTONIX [Concomitant]

REACTIONS (1)
  - RASH [None]
